FAERS Safety Report 8536592-0 (Version None)
Quarter: 2012Q3

REPORT INFORMATION
  Report Type: 
  Country: None (occurrence: None)
  Receive Date: 20120718
  Receipt Date: 20120718
  Transmission Date: 20120928
  Serious: Yes (Disabling)
  Sender: FDA-Public Use
  Company Number: None

PATIENT
  Sex: Female

DRUGS (2)
  1. TRIAMTERENE AND HYDROCHLOROTHIAZIDE [Concomitant]
  2. LEVOFLOXACIN [Suspect]
     Indication: PNEUMONIA
     Dosage: ONE A DAY PO
     Route: 048
     Dates: start: 20120301, end: 20120305

REACTIONS (1)
  - TENDON RUPTURE [None]
